FAERS Safety Report 8261036-6 (Version None)
Quarter: 2012Q2

REPORT INFORMATION
  Report Type: 
  Country: None (occurrence: None)
  Receive Date: 20120405
  Receipt Date: 20120323
  Transmission Date: 20120825
  Serious: Yes (Other)
  Sender: FDA-Public Use
  Company Number: PHHY2012JP026087

PATIENT
  Sex: Female
  Weight: 69 kg

DRUGS (21)
  1. RHUMAB-E25 [Suspect]
     Dosage: UNK
     Dates: start: 20120308, end: 20120308
  2. PROCATEROL HCL [Concomitant]
     Indication: ASTHMA
  3. NEORAL [Suspect]
     Route: 048
  4. SINGULAIR [Concomitant]
     Indication: ASTHMA
  5. TRICHLORMETHIAZIDE [Concomitant]
  6. RHUMAB-E25 [Suspect]
     Dosage: UNK
     Dates: start: 20120209
  7. SYMBICORT [Concomitant]
     Indication: ASTHMA
  8. HOKUNALIN [Concomitant]
     Indication: ASTHMA
  9. IPD [Concomitant]
     Indication: ASTHMA
  10. RIZABEN [Concomitant]
     Indication: ASTHMA
  11. COTRIM [Concomitant]
  12. RABEPRAZOLE SODIUM [Concomitant]
  13. ZOLPIDEM [Concomitant]
  14. CLOSTRIDIUM BUTYRICUM [Concomitant]
  15. RHUMAB-E25 [Suspect]
     Indication: ASTHMA
     Dosage: 375 MG, QW2
     Route: 058
     Dates: start: 20120127
  16. EPINASTINE HYDROCHLORIDE [Concomitant]
     Indication: ASTHMA
  17. PREDNISOLONE [Concomitant]
     Indication: ASTHMA
  18. DEPAS [Concomitant]
  19. RHUMAB-E25 [Suspect]
     Dosage: UNK
     Dates: start: 20120223
  20. PULMICORT [Concomitant]
     Indication: ASTHMA
  21. HIRUDOID [Concomitant]

REACTIONS (3)
  - INFUSION SITE REACTION [None]
  - FEELING ABNORMAL [None]
  - LARYNGEAL OEDEMA [None]
